FAERS Safety Report 17508064 (Version 1)
Quarter: 2020Q1

REPORT INFORMATION
  Report Type: Other
  Country: DE (occurrence: DE)
  Receive Date: 20200305
  Receipt Date: 20200305
  Transmission Date: 20200409
  Serious: Yes (Hospitalization, Other)
  Sender: FDA-Public Use
  Company Number: DE-CELLTRION INC.-2020DE019792

PATIENT

DRUGS (44)
  1. RITUXIMAB (UNKNOWN) [Suspect]
     Active Substance: RITUXIMAB
     Dosage: 637 MG, (INFUSION RATE 200 ML/MIN FROM 10:00 TO 12:30)
     Route: 041
     Dates: start: 20180925, end: 20180925
  2. RITUXIMAB (UNKNOWN) [Suspect]
     Active Substance: RITUXIMAB
     Dosage: 637 MG,(INFUSION RATE 50 ML/MIN FROM 09:00 TO 14:00)
     Route: 041
     Dates: start: 20180613, end: 20180613
  3. VINCRISTINE [Suspect]
     Active Substance: VINCRISTINE
     Dosage: 2.38 MG, UNK
     Route: 041
     Dates: start: 20180814, end: 20180814
  4. PREDNISONE. [Suspect]
     Active Substance: PREDNISONE
     Dosage: 400 MG, UNK
     Route: 048
     Dates: start: 20181023, end: 20181026
  5. PREDNISONE. [Suspect]
     Active Substance: PREDNISONE
     Dosage: 400 MG, UNK
     Route: 048
     Dates: start: 20180925, end: 20180928
  6. DOXORUBICIN [Suspect]
     Active Substance: DOXORUBICIN
     Dosage: 85 MG, (INFUSION RATE 5.6 ML/MIN FROM 15:30 TO 15:45)
     Route: 041
     Dates: start: 20180613, end: 20180613
  7. CYCLOPHOSPHAMIDE. [Suspect]
     Active Substance: CYCLOPHOSPHAMIDE
     Dosage: 1275 MG, (INFUSION RATE 500 ML/MIN FROM 12:30 TO 13:30)
     Route: 041
     Dates: start: 20180724, end: 20180724
  8. CYCLOPHOSPHAMIDE. [Suspect]
     Active Substance: CYCLOPHOSPHAMIDE
     Dosage: 1275 MG, (INFUSION RATE 500 ML/MIN FROM 12:30 TO 13:30)
     Route: 041
     Dates: start: 20180703, end: 20180703
  9. RITUXIMAB (UNKNOWN) [Suspect]
     Active Substance: RITUXIMAB
     Indication: DIFFUSE LARGE B-CELL LYMPHOMA
     Dosage: 637 MG, (INFUSION RATE 200 ML/MIN FROM 10:00 TO 12:30)
     Route: 041
     Dates: start: 20180904, end: 20180904
  10. RITUXIMAB (UNKNOWN) [Suspect]
     Active Substance: RITUXIMAB
     Dosage: 637 MG, (INFUSION RATE 3.8 ML/MIN FROM 10:00 TO 12:30)
     Route: 041
     Dates: start: 20181113
  11. RITUXIMAB (UNKNOWN) [Suspect]
     Active Substance: RITUXIMAB
     Dosage: 637 MG, (INFUSION RATE 200 ML/MIN FROM 10:00 TO 12:30)
     Route: 041
     Dates: start: 20180814, end: 20180814
  12. PREDNISONE. [Suspect]
     Active Substance: PREDNISONE
     Dosage: 400 MG, UNK
     Route: 048
     Dates: start: 20180904, end: 20180907
  13. PREDNISONE. [Suspect]
     Active Substance: PREDNISONE
     Dosage: 400 MG, UNK
     Route: 048
     Dates: start: 20180613, end: 20180616
  14. CYCLOPHOSPHAMIDE. [Suspect]
     Active Substance: CYCLOPHOSPHAMIDE
     Dosage: 1275 MG, (INFUSION RATE 500 ML/MIN FROM 12:30 TO 13:30)
     Route: 041
     Dates: start: 20180904, end: 20180904
  15. JANUVIA [Concomitant]
     Active Substance: SITAGLIPTIN PHOSPHATE
     Indication: PRODUCT USED FOR UNKNOWN INDICATION
     Dosage: UNK
     Route: 048
  16. CLEXANE [Concomitant]
     Active Substance: ENOXAPARIN SODIUM
     Indication: PROPHYLAXIS
     Dosage: UNK
     Route: 058
     Dates: start: 20181007
  17. RITUXIMAB (UNKNOWN) [Suspect]
     Active Substance: RITUXIMAB
     Dosage: 637 MG, (INFUSION RATE 200 ML/MIN FROM 10:00 TO 12:30)
     Route: 041
     Dates: start: 20180703, end: 20180703
  18. PREDNISONE. [Suspect]
     Active Substance: PREDNISONE
     Dosage: 400 MG, UNK
     Route: 048
     Dates: start: 20180703, end: 20180706
  19. PREDNISOLONE. [Concomitant]
     Active Substance: PREDNISOLONE
     Indication: PRODUCT USED FOR UNKNOWN INDICATION
     Dosage: UNK
     Route: 042
     Dates: start: 20181113, end: 20181113
  20. DOXORUBICIN [Suspect]
     Active Substance: DOXORUBICIN
     Dosage: 85 MG, (INFUSION RATE 5.6 ML/MIN FROM 12:30 TO 12:45)
     Route: 041
     Dates: start: 20181023, end: 20181023
  21. RANITIDINE. [Concomitant]
     Active Substance: RANITIDINE
     Indication: PRODUCT USED FOR UNKNOWN INDICATION
     Dosage: UNK
     Route: 042
     Dates: start: 20180613, end: 20181113
  22. PANTOPRAZOLE [Concomitant]
     Active Substance: PANTOPRAZOLE
     Indication: PRODUCT USED FOR UNKNOWN INDICATION
     Dosage: UNK
     Route: 048
  23. ALENDRONSAEURE [Concomitant]
     Active Substance: ALENDRONATE SODIUM
     Indication: PROPHYLAXIS
     Dosage: UNK
     Route: 048
     Dates: start: 201810
  24. MESNA. [Concomitant]
     Active Substance: MESNA
     Indication: PRODUCT USED FOR UNKNOWN INDICATION
     Dosage: UNK
     Route: 048
     Dates: start: 20180613, end: 20180925
  25. MESNA. [Concomitant]
     Active Substance: MESNA
     Dosage: UNK
     Route: 042
     Dates: start: 20180613, end: 20180925
  26. ZOFRAN [Concomitant]
     Active Substance: ONDANSETRON HYDROCHLORIDE
     Indication: PRODUCT USED FOR UNKNOWN INDICATION
     Dosage: UNK
     Route: 042
     Dates: start: 20180613, end: 20181113
  27. RITUXIMAB (UNKNOWN) [Suspect]
     Active Substance: RITUXIMAB
     Dosage: 637 MG, (INFUSION RATE 200 ML/MIN FROM 10:00 TO 12:30)
     Route: 041
     Dates: start: 20180724, end: 20180724
  28. VINCRISTINE [Suspect]
     Active Substance: VINCRISTINE
     Indication: DIFFUSE LARGE B-CELL LYMPHOMA
     Dosage: 2.38 MG, UNK
     Route: 041
     Dates: start: 20180613, end: 20180613
  29. VINCRISTINE [Suspect]
     Active Substance: VINCRISTINE
     Dosage: 2.38 MG, UNK
     Route: 041
     Dates: start: 20180703, end: 20180703
  30. VINCRISTINE [Suspect]
     Active Substance: VINCRISTINE
     Dosage: 2.38 MG, UNK
     Route: 041
     Dates: start: 20180724, end: 20180724
  31. CYCLOPHOSPHAMIDE. [Suspect]
     Active Substance: CYCLOPHOSPHAMIDE
     Dosage: 1275 MG, (INFUSION RATE 500 ML/MIN FROM 12:30 TO 13:30)
     Route: 041
     Dates: start: 20180925, end: 20180925
  32. CYCLOPHOSPHAMIDE. [Suspect]
     Active Substance: CYCLOPHOSPHAMIDE
     Dosage: 1275 MG, (INFUSION RATE 500 ML/MIN FROM 12:30 TO 13:30)
     Route: 041
     Dates: start: 20181023, end: 20181023
  33. MCP [Concomitant]
     Active Substance: METOCLOPRAMIDE HYDROCHLORIDE
     Indication: PROPHYLAXIS
     Route: 048
  34. DOXORUBICIN [Suspect]
     Active Substance: DOXORUBICIN
     Indication: DIFFUSE LARGE B-CELL LYMPHOMA
     Dosage: 85 MG, UNK
     Route: 041
     Dates: start: 20180724, end: 20180724
  35. DOXORUBICIN [Suspect]
     Active Substance: DOXORUBICIN
     Dosage: 85 MG, UNK
     Route: 041
     Dates: start: 20180904, end: 20180904
  36. DOXORUBICIN [Suspect]
     Active Substance: DOXORUBICIN
     Dosage: 85 MG, (INFUSION RATE 5.6 ML/MIN FROM 13:30 TO 13:45)
     Route: 041
     Dates: start: 20180925, end: 20180925
  37. ATENOLOL. [Concomitant]
     Active Substance: ATENOLOL
     Indication: PRODUCT USED FOR UNKNOWN INDICATION
     Dosage: UNK
     Route: 048
  38. RITUXIMAB (UNKNOWN) [Suspect]
     Active Substance: RITUXIMAB
     Dosage: 637 MG, (INFUSION RATE 200 ML/MIN FROM 10:00 TO 12:30)
     Route: 041
     Dates: start: 20181023, end: 20181023
  39. DOXORUBICIN [Suspect]
     Active Substance: DOXORUBICIN
     Dosage: 85 MG, UNK
     Route: 041
     Dates: start: 20180703, end: 20180703
  40. DOXORUBICIN [Suspect]
     Active Substance: DOXORUBICIN
     Dosage: 85 MG, UNK
     Route: 041
     Dates: start: 20180814, end: 20180814
  41. CYCLOPHOSPHAMIDE. [Suspect]
     Active Substance: CYCLOPHOSPHAMIDE
     Dosage: 1275 MG, (INFUSION RATE 8 ML/MIN FROM 14:30 TO 15:30)
     Route: 041
     Dates: start: 20180613, end: 20180613
  42. PREDNISONE. [Suspect]
     Active Substance: PREDNISONE
     Indication: DIFFUSE LARGE B-CELL LYMPHOMA
     Dosage: 400 MG, UNK
     Route: 048
     Dates: start: 20180724, end: 20180727
  43. PREDNISONE. [Suspect]
     Active Substance: PREDNISONE
     Dosage: 400 MG, UNK
     Route: 048
     Dates: start: 20180814, end: 20180817
  44. CYCLOPHOSPHAMIDE. [Suspect]
     Active Substance: CYCLOPHOSPHAMIDE
     Indication: DIFFUSE LARGE B-CELL LYMPHOMA
     Dosage: 1275 MG, (INFUSION RATE 500 ML/MIN FROM 12:30 TO 13:30)
     Route: 041
     Dates: start: 20180814, end: 20180814

REACTIONS (4)
  - Overdose [Unknown]
  - Polyneuropathy [Recovered/Resolved]
  - Fall [Unknown]
  - Fall [Recovered/Resolved]

NARRATIVE: CASE EVENT DATE: 20180904
